FAERS Safety Report 7623943-4 (Version None)
Quarter: 2011Q3

REPORT INFORMATION
  Report Type: 
  Country: None (occurrence: None)
  Receive Date: 20110720
  Receipt Date: 20110711
  Transmission Date: 20111222
  Serious: Yes (Hospitalization)
  Sender: FDA-Public Use
  Company Number: US-ASTRAZENECA-2011SE41735

PATIENT
  Age: 57 Year
  Sex: Female

DRUGS (17)
  1. DULOXETIME HYDROCHLORIDE [Concomitant]
     Route: 048
  2. CLONAZEPAM [Concomitant]
     Route: 048
  3. METFORMIN HCL [Concomitant]
  4. MECLIZINE [Concomitant]
  5. FERROUS SULFATE TAB [Concomitant]
     Route: 048
  6. ASCORBIC ACID [Concomitant]
  7. CYMBALTA [Concomitant]
     Route: 048
  8. SEROQUEL [Suspect]
     Route: 048
  9. MULTI-VITAMIN [Concomitant]
     Route: 048
  10. OSTEO BIFLEX [Concomitant]
  11. TRAZODONE [Concomitant]
     Route: 048
  12. CRESTOR [Suspect]
     Route: 048
  13. CLOPIDOGREL [Concomitant]
     Route: 048
  14. MELATONIN [Concomitant]
  15. OXYCODONE HCL AND ACETAMINOPHEN [Concomitant]
     Dosage: 5/325 MG AS REQUIRED
  16. LEVOTHYROXINE SODIUM [Concomitant]
     Route: 048
  17. PLAVIX [Concomitant]

REACTIONS (23)
  - HYPERTENSION [None]
  - DEPRESSION [None]
  - VERTIGO [None]
  - ABDOMINAL PANNICULECTOMY [None]
  - DYSTHYMIC DISORDER [None]
  - SJOGREN'S SYNDROME [None]
  - TRANSIENT ISCHAEMIC ATTACK [None]
  - HYPERLIPIDAEMIA [None]
  - MUSCULOSKELETAL PAIN [None]
  - GASTROOESOPHAGEAL REFLUX DISEASE [None]
  - OSTEOARTHRITIS [None]
  - BACK PAIN [None]
  - MAJOR DEPRESSION [None]
  - LIMB OPERATION [None]
  - ARTHRITIS [None]
  - PANCREATITIS [None]
  - ANAEMIA [None]
  - TREMOR [None]
  - PAIN IN EXTREMITY [None]
  - ROAD TRAFFIC ACCIDENT [None]
  - TYPE 2 DIABETES MELLITUS [None]
  - MOUTH ULCERATION [None]
  - HYPOTHYROIDISM [None]
